APPROVED DRUG PRODUCT: PREDNISOLONE SODIUM PHOSPHATE
Active Ingredient: PREDNISOLONE SODIUM PHOSPHATE
Strength: EQ 0.9% PHOSPHATE
Dosage Form/Route: SOLUTION/DROPS;OPHTHALMIC
Application: A040070 | Product #001
Applicant: BAUSCH AND LOMB PHARMACEUTICALS INC
Approved: Jul 29, 1994 | RLD: No | RS: Yes | Type: RX